FAERS Safety Report 6966508-X (Version None)
Quarter: 2010Q3

REPORT INFORMATION
  Report Type: 
  Country: None (occurrence: None)
  Receive Date: 20100906
  Receipt Date: 20100827
  Transmission Date: 20110219
  Serious: Yes (Hospitalization)
  Sender: FDA-Public Use
  Company Number: US-BIOGENIDEC-2010BI028458

PATIENT
  Age: 51 Year
  Sex: Female

DRUGS (7)
  1. AVONEX [Suspect]
     Indication: MULTIPLE SCLEROSIS
     Route: 030
     Dates: start: 20001215
  2. NORVASC [Concomitant]
     Indication: HYPERTENSION
  3. ZOCOR [Concomitant]
     Indication: HYPERLIPIDAEMIA
  4. SYNTHROID [Concomitant]
  5. TEGRETOL [Concomitant]
     Indication: TRIGEMINAL NEURALGIA
  6. ZOLOFT [Concomitant]
     Indication: DEPRESSION
  7. BACLOFEN [Concomitant]
     Indication: MUSCLE SPASTICITY

REACTIONS (3)
  - ABDOMINAL PAIN [None]
  - CHEST PAIN [None]
  - MULTIPLE SCLEROSIS RELAPSE [None]
